FAERS Safety Report 7984344-2 (Version None)
Quarter: 2011Q4

REPORT INFORMATION
  Report Type: 
  Country: None (occurrence: None)
  Receive Date: 20111216
  Receipt Date: 20111207
  Transmission Date: 20120403
  Serious: Yes (Hospitalization)
  Sender: FDA-Public Use
  Company Number: NL-JNJFOC-20111204080

PATIENT
  Age: 58 Year
  Sex: Female

DRUGS (13)
  1. NEULASTA [Suspect]
     Indication: CHEMOTHERAPY
     Route: 058
  2. CYCLOPHOSPHAMIDE [Suspect]
     Indication: PRODUCT USED FOR UNKNOWN INDICATION
     Route: 058
     Dates: start: 20110511
  3. IBUPROFEN [Concomitant]
     Route: 065
  4. PARACETAMOL [Concomitant]
     Route: 065
  5. PANTOPRAZOLE [Concomitant]
     Route: 065
  6. OXAZEPAM [Concomitant]
     Route: 065
  7. DOCETAXEL [Suspect]
     Indication: PRODUCT USED FOR UNKNOWN INDICATION
     Route: 065
     Dates: start: 20110511
  8. TEMAZEPAM [Concomitant]
     Route: 065
  9. NEULASTA [Suspect]
     Route: 058
     Dates: start: 20110512
  10. DICLOFENAC SODIUM [Concomitant]
     Route: 065
  11. DOXORUBICIN HCL [Suspect]
     Indication: PRODUCT USED FOR UNKNOWN INDICATION
     Route: 042
     Dates: start: 20110511
  12. ONDANSETRON [Concomitant]
     Route: 065
  13. DEXAMETHASONE [Concomitant]
     Route: 065

REACTIONS (2)
  - PSEUDOMONAL BACTERAEMIA [None]
  - FEBRILE NEUTROPENIA [None]
